FAERS Safety Report 9052439 (Version 1)
Quarter: 2013Q1

REPORT INFORMATION
  Report Type: Spontaneous
  Country: US (occurrence: US)
  Receive Date: 20130207
  Receipt Date: 20130207
  Transmission Date: 20140127
  Serious: No
  Sender: FDA-Public Use
  Company Number: US-BAYER-2013-014060

PATIENT
  Sex: 0

DRUGS (3)
  1. ULTRAVIST [Suspect]
  2. ULTRAVIST [Suspect]
  3. ULTRAVIST [Suspect]

REACTIONS (6)
  - Headache [None]
  - Dizziness [None]
  - Cough [None]
  - Throat irritation [None]
  - Asthenia [None]
  - Rash macular [None]
